FAERS Safety Report 16322080 (Version 1)
Quarter: 2019Q2

REPORT INFORMATION
  Report Type: Spontaneous
  Country: ES (occurrence: ES)
  Receive Date: 20190516
  Receipt Date: 20190516
  Transmission Date: 20190711
  Serious: Yes (Disabling)
  Sender: FDA-Public Use
  Company Number: ES-PFIZER INC-2019201771

PATIENT
  Age: 32 Year
  Sex: Female
  Weight: 57 kg

DRUGS (4)
  1. PANTOPRAZOL [PANTOPRAZOLE] [Concomitant]
     Active Substance: PANTOPRAZOLE
     Indication: OESOPHAGEAL DISCOMFORT
     Dosage: 1 DF, DAILY (1 A DAY)
     Dates: start: 20190318, end: 20190407
  2. ALPRAZOLAM. [Suspect]
     Active Substance: ALPRAZOLAM
     Indication: ANXIETY
     Dosage: 0.25 UNK, UNK (0.25 IN THE MORNING AND SOMTIMES AT NIGHT)
     Dates: start: 20190409
  3. RHODIOLA ROSEA [Concomitant]
     Active Substance: HERBALS
     Indication: ANXIETY
     Dosage: UNK
     Dates: start: 20190304, end: 20190331
  4. ESCITALOPRAM CINFA [Suspect]
     Active Substance: ESCITALOPRAM OXALATE
     Indication: ANXIETY
     Dosage: 5 MG, DAILY
     Dates: start: 20190411

REACTIONS (6)
  - Palpitations [Not Recovered/Not Resolved]
  - Derealisation [Not Recovered/Not Resolved]
  - Feeling abnormal [Not Recovered/Not Resolved]
  - Anxiety [Not Recovered/Not Resolved]
  - Somnolence [Not Recovered/Not Resolved]
  - Disturbance in attention [Not Recovered/Not Resolved]

NARRATIVE: CASE EVENT DATE: 20190411
